FAERS Safety Report 4332957-1 (Version None)
Quarter: 2004Q1

REPORT INFORMATION
  Report Type: 
  Country: None (occurrence: None)
  Receive Date: 20040330
  Receipt Date: 20040315
  Transmission Date: 20041129
  Serious: Yes (Hospitalization)
  Sender: FDA-Public Use
  Company Number: US-JNJFOC-20040303796

PATIENT
  Age: 53 Year
  Sex: Female
  Weight: 119.296 kg

DRUGS (15)
  1. INFLIXIMAB (INFLIXIMAB, RECOMBINANT) LYOPHILIZED POWDER [Suspect]
     Indication: RHEUMATOID ARTHRITIS
     Dosage: INTRAVENOUS
     Route: 042
     Dates: start: 20020116
  2. ASPIRIN [Concomitant]
  3. GLUCOTROL [Concomitant]
  4. DARVOCET [Concomitant]
  5. TYLENOL [Concomitant]
  6. ALBUTEROL [Concomitant]
  7. PAMELOR [Concomitant]
  8. SYNTHROID (LEVOTHYROXINE HYDROCHLORIDE) [Concomitant]
  9. ALLEGRA [Concomitant]
  10. BUMEX [Concomitant]
  11. PROZAC [Concomitant]
  12. PLAQUENIL [Concomitant]
  13. INSULIN [Concomitant]
  14. BEXTRA [Concomitant]
  15. PRILOSEC [Concomitant]

REACTIONS (4)
  - CARDIAC FAILURE CONGESTIVE [None]
  - CHRONIC OBSTRUCTIVE AIRWAYS DISEASE EXACERBATED [None]
  - CONDITION AGGRAVATED [None]
  - GASTRIC BYPASS [None]
